FAERS Safety Report 22058284 (Version 2)
Quarter: 2023Q1

REPORT INFORMATION
  Report Type: Report from Study
  Country: US (occurrence: US)
  Receive Date: 20230303
  Receipt Date: 20230307
  Transmission Date: 20230418
  Serious: No
  Sender: FDA-Public Use
  Company Number: US-002147023-NVSC2023US047829

PATIENT
  Sex: Female

DRUGS (1)
  1. ENTRESTO [Suspect]
     Active Substance: SACUBITRIL\VALSARTAN
     Indication: Product used for unknown indication
     Dosage: 97 MG, BID (97/103)
     Route: 065

REACTIONS (5)
  - Sleep apnoea syndrome [Unknown]
  - Food craving [Unknown]
  - Dizziness postural [Unknown]
  - Fatigue [Unknown]
  - Hypotension [Unknown]
